FAERS Safety Report 22157026 (Version 1)
Quarter: 2023Q1

REPORT INFORMATION
  Report Type: Spontaneous
  Country: US (occurrence: None)
  Receive Date: 20230330
  Receipt Date: 20230330
  Transmission Date: 20230418
  Serious: Yes (Life-Threatening, Hospitalization)
  Sender: FDA-Public Use
  Company Number: None

PATIENT
  Age: 60 Year
  Sex: Female

DRUGS (1)
  1. SUMATRIPTAN [Suspect]
     Active Substance: SUMATRIPTAN
     Indication: Migraine
     Dosage: FREQUENCY : AS NEEDED;?
     Route: 048

REACTIONS (4)
  - Acute myocardial infarction [None]
  - Ventricular tachycardia [None]
  - Coronary artery occlusion [None]
  - Arteriospasm coronary [None]

NARRATIVE: CASE EVENT DATE: 20210625
